FAERS Safety Report 13384694 (Version 1)
Quarter: 2017Q1

REPORT INFORMATION
  Report Type: Spontaneous
  Country: US (occurrence: US)
  Receive Date: 20170329
  Receipt Date: 20170329
  Transmission Date: 20170429
  Serious: No
  Sender: FDA-Public Use
  Company Number: None

PATIENT
  Age: 56 Year
  Sex: Female
  Weight: 65.7 kg

DRUGS (3)
  1. FISH OIL [Concomitant]
     Active Substance: FISH OIL
  2. XIIDRA [Suspect]
     Active Substance: LIFITEGRAST
     Indication: DRY EYE
     Dosage: ?          QUANTITY:2 DROP(S);?
     Route: 047
     Dates: start: 20170314, end: 20170327
  3. 1 A DAY WOMEN VITAMINS [Concomitant]

REACTIONS (5)
  - Dysgeusia [None]
  - Breath odour [None]
  - Eye pruritus [None]
  - Eye swelling [None]
  - Ocular hyperaemia [None]

NARRATIVE: CASE EVENT DATE: 20170321
